FAERS Safety Report 8736289 (Version 2)
Quarter: 2012Q4

REPORT INFORMATION
  Report Type: 
  Country: NO (occurrence: NO)
  Receive Date: 20120822
  Receipt Date: 20120828
  Transmission Date: 20130627
  Serious: Yes (Hospitalization, Other)
  Sender: FDA-Public Use
  Company Number: PHHY2012NO070641

PATIENT
  Age: 35 Year
  Sex: Female
  Weight: 45 kg

DRUGS (9)
  1. TOPIRAMATE [Suspect]
     Indication: EPILEPSY
     Dosage: 300 mg, BID
     Dates: start: 200909, end: 201205
  2. ZONEGRAN [Interacting]
     Indication: EPILEPSY
     Dosage: 300 mg, BID
     Route: 048
     Dates: start: 20110822, end: 20120109
  3. LEVETIRACETAM [Concomitant]
  4. KARBAMAZEPIN [Concomitant]
  5. CLONAZEPAM [Concomitant]
  6. NITRAZEPAM [Concomitant]
  7. FENOBARBITAL [Concomitant]
  8. LAMOTRIGINE [Concomitant]
  9. VALPROATE SODIUM [Concomitant]

REACTIONS (2)
  - Psychotic disorder [Recovered/Resolved]
  - Drug interaction [Recovered/Resolved]
